FAERS Safety Report 16212242 (Version 1)
Quarter: 2019Q2

REPORT INFORMATION
  Report Type: Spontaneous
  Country: US (occurrence: US)
  Receive Date: 20190418
  Receipt Date: 20190418
  Transmission Date: 20190711
  Serious: Yes (Death, Life-Threatening)
  Sender: FDA-Public Use
  Company Number: US-HARRIS PHARMACEUTICAL-2019HAR00009

PATIENT
  Age: 72 Year
  Sex: Male

DRUGS (1)
  1. TERBINAFINE. [Suspect]
     Active Substance: TERBINAFINE
     Indication: ONYCHOMYCOSIS
     Dosage: UNK, 1X/DAY
     Route: 065

REACTIONS (3)
  - Shock [None]
  - Multiple organ dysfunction syndrome [Fatal]
  - Acute hepatic failure [Fatal]
